FAERS Safety Report 23763359 (Version 1)
Quarter: 2024Q2

REPORT INFORMATION
  Report Type: Report from Study
  Country: US (occurrence: None)
  Receive Date: 20240419
  Receipt Date: 20240419
  Transmission Date: 20240716
  Serious: Yes (Death, Life-Threatening)
  Sender: FDA-Public Use
  Company Number: 2024A092318

PATIENT
  Age: 77 Year
  Sex: Male

DRUGS (2)
  1. ANDEXANET ALFA [Suspect]
     Active Substance: ANDEXANET ALFA
     Indication: Haemorrhage
     Dosage: 400 MG BOLUS WAS GIVEN, FOLLOWED BY A 4 MG/MIN INFUSION FOR 120 MINUTES.
     Route: 040
  2. APIXABAN [Concomitant]
     Active Substance: APIXABAN

REACTIONS (2)
  - Ischaemic stroke [Fatal]
  - Arterial thrombosis [Unknown]
